APPROVED DRUG PRODUCT: ZINGO
Active Ingredient: LIDOCAINE HYDROCHLORIDE
Strength: 0.5MG
Dosage Form/Route: SYSTEM;INTRADERMAL
Application: N022114 | Product #001
Applicant: POWDER PHARMACEUTICALS INC
Approved: Aug 16, 2007 | RLD: No | RS: No | Type: RX

PATENTS:
Patent 9370622 | Expires: Sep 28, 2035
Patent 9358338 | Expires: Apr 27, 2035
Patent 8540665 | Expires: Oct 22, 2029